FAERS Safety Report 17811361 (Version 1)
Quarter: 2020Q2

REPORT INFORMATION
  Report Type: Spontaneous
  Country: US (occurrence: US)
  Receive Date: 20200520
  Receipt Date: 20200520
  Transmission Date: 20200714
  Serious: No
  Sender: FDA-Public Use
  Company Number: None

PATIENT
  Age: 55 Year
  Sex: Female
  Weight: 85.5 kg

DRUGS (1)
  1. BIVALIRUDIN FOR INJECTION [Suspect]
     Active Substance: BIVALIRUDIN
     Indication: ANGIOPLASTY
     Dosage: ?          OTHER FREQUENCY:BOLUS + INFUSION;?
     Route: 041
     Dates: start: 20200430, end: 20200430

REACTIONS (3)
  - Product formulation issue [None]
  - Thrombosis [None]
  - Drug ineffective [None]

NARRATIVE: CASE EVENT DATE: 20200430
